FAERS Safety Report 6297272-8 (Version None)
Quarter: 2009Q3

REPORT INFORMATION
  Report Type: 
  Country: None (occurrence: None)
  Receive Date: 20090805
  Receipt Date: 20090731
  Transmission Date: 20100115
  Serious: Yes (Hospitalization)
  Sender: FDA-Public Use
  Company Number: DE-WYE-G04156909

PATIENT
  Age: 33 Year
  Sex: Male

DRUGS (7)
  1. TREVILOR RETARD [Suspect]
     Dosage: UNKNOWN AMOUNT ON 30-JUL-2009; DAILY DOSE UNKNOWN
     Route: 048
  2. ETHANOL [Suspect]
     Dosage: UNKNOWN
     Route: 048
     Dates: start: 20090730, end: 20090730
  3. DOMINAL [Suspect]
     Dosage: UNKNOWN AMOUNT ON 30-JUL-2009; DAILY DOSE UNKNOWN
     Route: 048
  4. DIAZEPAM [Suspect]
     Dosage: UNKNOWN AMOUNT ON 30-JUL-2009; DAILY DOSE UNKNOWN
     Route: 048
  5. DISTRANEURIN [Suspect]
     Dosage: 25 CAPSULES TO THE MAX ON 30-JUL-2009; DAILY DOSE UNKNOWN
     Route: 048
  6. CANNABIS [Suspect]
     Dosage: UNKNOWN
     Route: 055
     Dates: start: 20090728, end: 20090730
  7. ATOSIL [Suspect]
     Dosage: UNKNOWN AMOUNT ON 30-JUL-2009; DAILY DOSE UNKNOWN
     Route: 048

REACTIONS (3)
  - DRUG ABUSE [None]
  - HYPOTENSION [None]
  - TACHYCARDIA [None]
